FAERS Safety Report 11544393 (Version 2)
Quarter: 2015Q3

REPORT INFORMATION
  Report Type: Spontaneous
  Country: US (occurrence: US)
  Receive Date: 20150924
  Receipt Date: 20150929
  Transmission Date: 20151125
  Serious: Yes (Other)
  Sender: FDA-Public Use
  Company Number: US-PFIZER INC-2015315326

PATIENT
  Age: 67 Year
  Sex: Female
  Weight: 47 kg

DRUGS (2)
  1. EFFEXOR XR [Suspect]
     Active Substance: VENLAFAXINE HYDROCHLORIDE
     Indication: DEPRESSION
     Dosage: 75 MG, DAILY BY MOUTH
     Route: 048
     Dates: start: 20150902
  2. EFFEXOR XR [Suspect]
     Active Substance: VENLAFAXINE HYDROCHLORIDE
     Indication: ANXIETY

REACTIONS (3)
  - Dyspnoea [Not Recovered/Not Resolved]
  - Hallucination, auditory [Unknown]
  - Tremor [Unknown]

NARRATIVE: CASE EVENT DATE: 201509
